FAERS Safety Report 23158303 (Version 2)
Quarter: 2025Q3

REPORT INFORMATION
  Report Type: Other
  Country: EU (occurrence: EU)
  Receive Date: 20231108
  Receipt Date: 20250807
  Transmission Date: 20251021
  Serious: Yes (Hospitalization, Other)
  Sender: MACLEODS
  Company Number: None

PATIENT

DRUGS (2)
  1. LEVOFLOXACIN [Suspect]
     Active Substance: LEVOFLOXACIN
     Indication: COVID-19
     Route: 065
     Dates: start: 2023
  2. CLARITHROMYCIN [Suspect]
     Active Substance: CLARITHROMYCIN
     Indication: COVID-19
     Route: 065
     Dates: start: 2023

REACTIONS (10)
  - Leukocyturia [Recovering/Resolving]
  - Syncope [Recovering/Resolving]
  - Eosinophilia [Recovering/Resolving]
  - Tubulointerstitial nephritis [Recovering/Resolving]
  - Leukocytosis [Unknown]
  - Glomerular filtration rate decreased [Recovering/Resolving]
  - Blood urea increased [Recovering/Resolving]
  - Blood creatinine increased [Recovered/Resolved]
  - Off label use [Unknown]
  - Intentional product misuse [Unknown]
